FAERS Safety Report 15445156 (Version 1)
Quarter: 2018Q3

REPORT INFORMATION
  Report Type: Spontaneous
  Country: US (occurrence: US)
  Receive Date: 20180831
  Receipt Date: 20180831
  Transmission Date: 20181010
  Serious: Yes (Disabling)
  Sender: FDA-Public Use
  Company Number: None

PATIENT
  Age: 52 Year
  Sex: Male
  Weight: 79.65 kg

DRUGS (3)
  1. PSEUDOEPHEDRINE [Concomitant]
     Active Substance: PSEUDOEPHEDRINE
  2. EFFEXOR [Concomitant]
     Active Substance: VENLAFAXINE HYDROCHLORIDE
  3. AYR SALINE NASAL GEL WITH SOOTHING ALOE TUBE, 0.5 OUNCE [Suspect]
     Active Substance: SODIUM CHLORIDE
     Indication: HYPERSENSITIVITY
     Route: 055
     Dates: start: 20180103, end: 20180425

REACTIONS (1)
  - Pneumonia [None]

NARRATIVE: CASE EVENT DATE: 20180312
